FAERS Safety Report 25793041 (Version 1)
Quarter: 2025Q3

REPORT INFORMATION
  Report Type: Spontaneous
  Country: EU (occurrence: EU)
  Receive Date: 20250911
  Receipt Date: 20250911
  Transmission Date: 20251021
  Serious: Yes (Other)
  Sender: PFIZER
  Company Number: None

PATIENT
  Age: 90 Year
  Sex: Male

DRUGS (1)
  1. PAXLOVID [Suspect]
     Active Substance: NIRMATRELVIR\RITONAVIR
     Indication: COVID-19
     Dosage: 1 DF, 2X/DAY (EVERY 12 HOURS)
     Route: 048
     Dates: start: 20250813, end: 20250814

REACTIONS (3)
  - Confusional state [Recovered/Resolved]
  - Psychomotor hyperactivity [Recovered/Resolved]
  - Disorientation [Recovered/Resolved]

NARRATIVE: CASE EVENT DATE: 20250814
